FAERS Safety Report 9157770 (Version 1)
Quarter: 2013Q1

REPORT INFORMATION
  Report Type: Spontaneous
  Country: DK (occurrence: None)
  Receive Date: 20130213
  Receipt Date: 20130213
  Transmission Date: 20140127
  Serious: Yes (Other)
  Sender: FDA-Public Use
  Company Number: 2013MA000954

PATIENT
  Age: 72 Year
  Sex: Male

DRUGS (3)
  1. HYDROCHLOROTHIAZIDE TABLETS USP, 50 MG (PUREPAC) (HYDROCHLOROTHIAZIDE) [Suspect]
     Indication: HYPERTENSION
     Dosage: 1 DF: QD; PO
     Route: 048
     Dates: start: 20130101, end: 20130110
  2. ALFUZOSINA [Concomitant]
  3. BLOPRESS [Concomitant]

REACTIONS (5)
  - No therapeutic response [None]
  - Blood pressure increased [None]
  - Balance disorder [None]
  - Malaise [None]
  - Product quality issue [None]
